FAERS Safety Report 8992817 (Version 4)
Quarter: 2013Q3

REPORT INFORMATION
  Report Type: Spontaneous
  Country: US (occurrence: US)
  Receive Date: 20130102
  Receipt Date: 20130719
  Transmission Date: 20140515
  Serious: Yes (Other)
  Sender: FDA-Public Use
  Company Number: US-BIOGENIDEC-2012BI064799

PATIENT
  Age: 41 Year
  Sex: Female

DRUGS (1)
  1. TYSABRI [Suspect]
     Indication: MULTIPLE SCLEROSIS
     Route: 042
     Dates: start: 20090115, end: 20121213

REACTIONS (4)
  - Pseudoepitheliomatous hyperplasia [Unknown]
  - Dermatitis infected [Unknown]
  - Interstitial granulomatous dermatitis [Unknown]
  - Cyst [Unknown]
